FAERS Safety Report 12709776 (Version 3)
Quarter: 2017Q1

REPORT INFORMATION
  Report Type: Spontaneous
  Country: US (occurrence: US)
  Receive Date: 20160902
  Receipt Date: 20170116
  Transmission Date: 20170428
  Serious: Yes (Hospitalization)
  Sender: FDA-Public Use
  Company Number: US-BAYER-2016-103343

PATIENT
  Age: 57 Year
  Sex: Female

DRUGS (5)
  1. PLAVIX [Interacting]
     Active Substance: CLOPIDOGREL BISULFATE
     Indication: CEREBROVASCULAR ACCIDENT
     Dosage: 75 MG, UNK
     Route: 048
     Dates: start: 20150415
  2. HEPARIN [Interacting]
     Active Substance: HEPARIN SODIUM
     Indication: PRODUCT USED FOR UNKNOWN INDICATION
     Dosage: UNK, 8ID
     Route: 058
     Dates: start: 201504
  3. XARELTO [Suspect]
     Active Substance: RIVAROXABAN
     Indication: DEEP VEIN THROMBOSIS
     Dosage: UNK
     Route: 048
     Dates: start: 20150108, end: 201504
  4. ACETYLSALICYLIC ACID (} 100 MG) [Suspect]
     Active Substance: ASPIRIN
     Indication: THROMBOSIS
     Dosage: UNK
     Route: 048
  5. ACETYLSALICYLIC ACID (} 100 MG) [Interacting]
     Active Substance: ASPIRIN
     Indication: THROMBOSIS
     Dosage: 325 MG, UNK
     Route: 048
     Dates: start: 20150415

REACTIONS (3)
  - Internal haemorrhage [Unknown]
  - Gastrointestinal haemorrhage [Unknown]
  - Ischaemic stroke [Unknown]

NARRATIVE: CASE EVENT DATE: 20150413
